FAERS Safety Report 4526416-0 (Version None)
Quarter: 2004Q4

REPORT INFORMATION
  Report Type: 
  Country: None (occurrence: None)
  Receive Date: 20041214
  Receipt Date: 20041207
  Transmission Date: 20050328
  Serious: Yes (Hospitalization)
  Sender: FDA-Public Use
  Company Number: JP-ROCHE-388323

PATIENT
  Age: 69 Year
  Sex: Male

DRUGS (5)
  1. PANALDINE [Suspect]
     Indication: STENT PLACEMENT
     Route: 048
     Dates: start: 20041005
  2. GENTAMICIN [Suspect]
     Route: 065
  3. PENICILLIN G [Suspect]
     Route: 065
  4. SIROLIMUS [Suspect]
     Dosage: REPORTED AS ^CYPHER STENT^.
     Route: 065
  5. AZELNIDIPINE [Suspect]
     Dosage: REPORTED AS CALBLOCK
     Route: 065

REACTIONS (2)
  - EOSINOPHIL COUNT INCREASED [None]
  - PYREXIA [None]
